FAERS Safety Report 8709834 (Version 5)
Quarter: 2012Q4

REPORT INFORMATION
  Report Type: Report from Study
  Country: DE (occurrence: DE)
  Receive Date: 20120806
  Receipt Date: 20121025
  Transmission Date: 20130627
  Serious: Yes (Other)
  Sender: FDA-Public Use
  Company Number: DE-PFIZER INC-2012187544

PATIENT
  Age: 50 Year
  Sex: Male
  Weight: 73 kg

DRUGS (6)
  1. VORICONAZOLE [Suspect]
     Indication: FUNGAL INFECTION
     Dosage: 400 mg, UNK
     Route: 048
     Dates: start: 20120717, end: 20120727
  2. ETOPOSIDE [Suspect]
     Indication: ACUTE MYELOID LEUKAEMIA
     Dosage: UNK
  3. TRETINOIN [Suspect]
     Indication: ACUTE MYELOID LEUKAEMIA
     Dosage: 90 units unknown
     Dates: start: 20120725, end: 20120821
  4. IDARUBICIN [Concomitant]
     Indication: ACUTE MYELOID LEUKAEMIA
     Dosage: 22.56 units unknown
     Dates: start: 20120719, end: 20120724
  5. CYTARABINE [Concomitant]
     Indication: ACUTE MYELOID LEUKAEMIA
     Dosage: 188 mg, 1x/day
     Dates: start: 20120719, end: 20120724
  6. PEGFILGRASTIM [Concomitant]
     Dosage: 1 DF, UNK
     Dates: start: 20120804, end: 20120804

REACTIONS (1)
  - Hyperbilirubinaemia [Recovered/Resolved]
